FAERS Safety Report 8385558 (Version 2)
Quarter: 2015Q2

REPORT INFORMATION
  Report Type: Report from Study
  Country: US (occurrence: US)
  Receive Date: 20120202
  Receipt Date: 20150622
  Transmission Date: 20150821
  Serious: Yes (Death)
  Sender: FDA-Public Use
  Company Number: US-ROCHE-1035807

PATIENT
  Sex: Female
  Weight: 2 kg

DRUGS (24)
  1. DARVOCET [Concomitant]
     Active Substance: ACETAMINOPHEN\PROPOXYPHENE HYDROCHLORIDE
     Route: 048
  2. AVASTIN [Suspect]
     Active Substance: BEVACIZUMAB
     Dosage: NEXT DOSE ON 17/FEB/2006, 03/MAR/2006, 17/MAR/2006, 17/APR/2006
     Route: 042
     Dates: start: 20060203
  3. BENADRYL [Concomitant]
     Active Substance: DIPHENHYDRAMINE HYDROCHLORIDE
     Dosage: NEXT DOSE ON  28/OCT/2005, 11/NOV/2005, 23/NOV/2005
     Route: 042
     Dates: start: 20051014, end: 20051014
  4. GEMZAR [Concomitant]
     Active Substance: GEMCITABINE HYDROCHLORIDE
     Dosage: ON 1, 8, 15 DAYS OF 28 DAYS CYCLE
     Route: 042
  5. NEXIUM [Concomitant]
     Active Substance: ESOMEPRAZOLE MAGNESIUM
     Dosage: 1-40MG
     Route: 048
  6. AVASTIN [Suspect]
     Active Substance: BEVACIZUMAB
     Dosage: NEXT DOSE ON 28/OCT/2005, 11/NOV/2005
     Route: 042
     Dates: start: 20051014
  7. GEMZAR [Concomitant]
     Active Substance: GEMCITABINE HYDROCHLORIDE
     Dosage: NEXT DOSE ON  28/OCT/2005, 11/NOV/2005, 23/NOV/2005, 09/DEC/2005, 06/JAN/2006, 20/JAN/2006, , 03/FEB
     Route: 042
     Dates: start: 20051014, end: 20051014
  8. PAXIL (UNITED STATES) [Concomitant]
     Dosage: 1-40 MG
     Route: 048
  9. AVASTIN [Suspect]
     Active Substance: BEVACIZUMAB
     Indication: PANCREATIC CARCINOMA
     Route: 042
     Dates: start: 20050707
  10. ZOFRAN [Concomitant]
     Active Substance: ONDANSETRON HYDROCHLORIDE
     Route: 048
  11. COMPAZINE [Concomitant]
     Active Substance: PROCHLORPERAZINE MALEATE
     Route: 054
  12. PROCARDIA (UNITED STATES) [Concomitant]
     Dosage: AS REQUIRED
     Route: 048
     Dates: start: 20051014
  13. XELODA [Suspect]
     Active Substance: CAPECITABINE
     Indication: PANCREATIC CARCINOMA
     Route: 065
  14. ARANESP [Concomitant]
     Active Substance: DARBEPOETIN ALFA
     Dosage: NEXT DOSE ON  28/OCT/2005, 23/NOV/2005, 03/FEB/2006, 03/MAR/2006
     Route: 058
     Dates: start: 20051014, end: 20051014
  15. AVASTIN [Suspect]
     Active Substance: BEVACIZUMAB
     Dosage: NEXT DOSE ON 09/DEC/2005, 06/JAN/2006, 20/JAN/2006
     Route: 042
     Dates: start: 20051123
  16. NEUPOGEN [Concomitant]
     Active Substance: FILGRASTIM
     Route: 065
  17. ALOXI [Concomitant]
     Active Substance: PALONOSETRON HYDROCHLORIDE
     Dosage: NEXT DOSE ON  28/OCT/2005, 11/NOV/2005, 23/NOV/2005, 09/DEC/2005, 06/JAN/2006, 20/JAN/2006, 03/FEB/2
     Route: 042
     Dates: start: 20051014, end: 20051014
  18. DECADRON [Concomitant]
     Active Substance: DEXAMETHASONE
     Dosage: NEXT DOSE ON  28/OCT/2005, 11/NOV/2005, 23/NOV/2005, 09/DEC/2005, 06/JAN/2006, 20/JAN/2006, 03/FEB/2
     Route: 042
     Dates: start: 20051014, end: 20051014
  19. DIOVAN [Concomitant]
     Active Substance: VALSARTAN
     Dosage: 160-25MG
     Route: 048
  20. DURAGESIC [Concomitant]
     Active Substance: FENTANYL
     Route: 062
  21. NEULASTA [Concomitant]
     Active Substance: PEGFILGRASTIM
     Route: 058
  22. LEVAQUIN [Concomitant]
     Active Substance: LEVOFLOXACIN
     Route: 048
  23. TOPROL XL [Concomitant]
     Active Substance: METOPROLOL SUCCINATE
     Route: 048
  24. MEDROL [Concomitant]
     Active Substance: METHYLPREDNISOLONE
     Route: 048

REACTIONS (7)
  - Fatigue [Unknown]
  - Off label use [Unknown]
  - Vomiting [Unknown]
  - Rash [Unknown]
  - Nausea [Unknown]
  - Pain [Unknown]
  - Death [Fatal]
